FAERS Safety Report 9856699 (Version 2)
Quarter: 2014Q1

REPORT INFORMATION
  Report Type: Spontaneous
  Country: US (occurrence: US)
  Receive Date: 20140130
  Receipt Date: 20140130
  Transmission Date: 20141002
  Serious: Yes (Hospitalization)
  Sender: FDA-Public Use
  Company Number: US-B.I. PHARMACEUTICALS,INC./RIDGEFIELD-2013-BI-30450BP

PATIENT
  Age: 79 Year
  Sex: Male
  Weight: 95.25 kg

DRUGS (14)
  1. PRADAXA [Suspect]
     Indication: ATRIAL FIBRILLATION
     Dosage: 300 MG
     Route: 048
     Dates: start: 20120214, end: 20121113
  2. VITA-C [Concomitant]
  3. ONE A DAY [Concomitant]
  4. LAMISIL [Concomitant]
     Dosage: 250 MG
     Route: 048
  5. LISINOPRIL [Concomitant]
     Dosage: 20 MG
     Route: 048
  6. CARDURA [Concomitant]
     Route: 048
  7. ZOCOR [Concomitant]
     Route: 048
  8. CO-ENZYME Q-10 [Concomitant]
     Dosage: 100 MG
  9. MAXEPA [Concomitant]
     Dosage: 100 MG
     Route: 048
  10. SUPER B COMPLEX [Concomitant]
     Route: 048
  11. ACETAMINOPHEN/DIPHENHYDRAMINE [Concomitant]
     Route: 048
  12. PRESERVISION [Concomitant]
     Route: 048
  13. TIAZAC [Concomitant]
     Dosage: 180 MG
     Route: 048
  14. PRILOSEC [Concomitant]
     Dosage: 20 MG
     Route: 048

REACTIONS (4)
  - Lower gastrointestinal haemorrhage [Recovered/Resolved]
  - Coagulopathy [Unknown]
  - Contusion [Unknown]
  - Haemoglobin abnormal [Unknown]
